FAERS Safety Report 5566720-0 (Version None)
Quarter: 2007Q4

REPORT INFORMATION
  Report Type: 
  Country: None (occurrence: None)
  Receive Date: 20071219
  Receipt Date: 20071210
  Transmission Date: 20080405
  Serious: Yes (Death, Hospitalization)
  Sender: FDA-Public Use
  Company Number: US-ROCHE-535917

PATIENT
  Age: 80 Year
  Sex: Female

DRUGS (1)
  1. BONIVA [Suspect]
     Indication: OSTEOPOROSIS
     Dosage: LAST DOSE WAS 11 NOVEMBER 2007 AS SCHEDULED
     Route: 048

REACTIONS (3)
  - DEMENTIA ALZHEIMER'S TYPE [None]
  - INTESTINAL OBSTRUCTION [None]
  - URINARY TRACT INFECTION [None]
